FAERS Safety Report 7062608-7 (Version None)
Quarter: 2010Q4

REPORT INFORMATION
  Report Type: 
  Country: None (occurrence: None)
  Receive Date: 20101026
  Receipt Date: 20091214
  Transmission Date: 20110411
  Serious: Yes (Other)
  Sender: FDA-Public Use
  Company Number: US-PFIZER INC-2009301590

PATIENT
  Sex: Male
  Weight: 72.562 kg

DRUGS (8)
  1. LIPITOR [Suspect]
     Indication: CORONARY ARTERY DISEASE
     Dosage: UNK
     Route: 048
     Dates: start: 19980101
  2. LIPITOR [Suspect]
     Indication: HYPERLIPIDAEMIA
  3. ACETYLSALICYLIC ACID [Concomitant]
     Dosage: 81 MG, 1X/DAY
  4. RAMIPRIL [Concomitant]
     Dosage: 10 MG, 1X/DAY
  5. FISH OIL [Concomitant]
     Dosage: 1200 MG, 1X/DAY
  6. PROVIGIL [Concomitant]
     Dosage: 200 MG, PER DAY
  7. LYRICA [Concomitant]
     Dosage: 75 MG, PER DAY
  8. NORTRIPTYLINE [Concomitant]
     Dosage: 35 MG, 1X/DAY

REACTIONS (3)
  - ALANINE AMINOTRANSFERASE INCREASED [None]
  - ASPARTATE AMINOTRANSFERASE INCREASED [None]
  - RHABDOMYOLYSIS [None]
